FAERS Safety Report 26092286 (Version 1)
Quarter: 2025Q4

REPORT INFORMATION
  Report Type: Spontaneous
  Country: EU (occurrence: EU)
  Receive Date: 20251126
  Receipt Date: 20251126
  Transmission Date: 20260117
  Serious: Yes (Other)
  Sender: AMGEN
  Company Number: EU-AMGEN-SVKSP2025230866

PATIENT
  Age: 66 Year
  Sex: Female

DRUGS (2)
  1. SOTORASIB [Suspect]
     Active Substance: SOTORASIB
     Indication: Non-small cell lung cancer
     Dosage: UNK
     Route: 065
     Dates: start: 202304
  2. SOTORASIB [Suspect]
     Active Substance: SOTORASIB
     Dosage: 840 MILLIGRAM, QD
     Route: 065
     Dates: start: 202504

REACTIONS (2)
  - Non-small cell lung cancer [Unknown]
  - Gastrointestinal toxicity [Recovered/Resolved]

NARRATIVE: CASE EVENT DATE: 20240109
